FAERS Safety Report 7956952-6 (Version None)
Quarter: 2011Q4

REPORT INFORMATION
  Report Type: 
  Country: None (occurrence: None)
  Receive Date: 20111205
  Receipt Date: 20111128
  Transmission Date: 20120403
  Serious: Yes (Death, Life-Threatening)
  Sender: FDA-Public Use
  Company Number: DE-ROCHE-1010718

PATIENT
  Sex: Male
  Weight: 111 kg

DRUGS (4)
  1. RITUXIMAB [Suspect]
     Indication: CHRONIC LYMPHOCYTIC LEUKAEMIA
     Dosage: DOSE: 355-500 MG/M2
     Route: 042
     Dates: start: 20110301, end: 20110719
  2. CYCLOPHOSPHAMIDE [Suspect]
     Indication: CHRONIC LYMPHOCYTIC LEUKAEMIA
     Route: 042
     Dates: start: 20110302, end: 20110722
  3. PREDNISONE [Concomitant]
     Indication: DYSPNOEA
     Route: 048
     Dates: start: 20110829
  4. FLUDARABINE PHOSPHATE [Suspect]
     Indication: CHRONIC LYMPHOCYTIC LEUKAEMIA
     Route: 042
     Dates: start: 20110302, end: 20110722

REACTIONS (2)
  - PNEUMONITIS [None]
  - PNEUMOCYSTIS JIROVECI PNEUMONIA [None]
